FAERS Safety Report 21898202 (Version 2)
Quarter: 2023Q1

REPORT INFORMATION
  Report Type: Report from Study
  Country: JP (occurrence: JP)
  Receive Date: 20230123
  Receipt Date: 20230210
  Transmission Date: 20230418
  Serious: Yes (Hospitalization, Other)
  Sender: FDA-Public Use
  Company Number: JP-ONO-2022JP022554

PATIENT
  Age: 64 Year
  Sex: Female
  Weight: 61.5 kg

DRUGS (16)
  1. BRAFTOVI [Suspect]
     Active Substance: ENCORAFENIB
     Indication: Colon cancer
     Dosage: 300 MG, 1X/DAY (EVERYDAY)
     Route: 048
     Dates: start: 20220712, end: 20220811
  2. BRAFTOVI [Suspect]
     Active Substance: ENCORAFENIB
     Dosage: 225 MG, 1X/DAY (EVERYDAY)
     Route: 048
     Dates: start: 20220826, end: 20221011
  3. MEKTOVI [Suspect]
     Active Substance: BINIMETINIB
     Indication: Colon cancer
     Dosage: 90 MG, 1X/DAY (EVERYDAY)
     Route: 048
     Dates: start: 20220712, end: 20220811
  4. MEKTOVI [Suspect]
     Active Substance: BINIMETINIB
     Dosage: 60 MG, 1X/DAY (EVERYDAY)
     Route: 048
     Dates: start: 20220826, end: 20221011
  5. CETUXIMAB [Suspect]
     Active Substance: CETUXIMAB
     Indication: Colon cancer
     Dosage: 400 MG/M2
     Route: 065
     Dates: start: 20220712, end: 20220713
  6. CETUXIMAB [Suspect]
     Active Substance: CETUXIMAB
     Dosage: 250 MG/M2
     Route: 065
     Dates: start: 20220719, end: 20221012
  7. LINZESS [Suspect]
     Active Substance: LINACLOTIDE
     Dosage: 0.5 MG
     Route: 048
     Dates: start: 20211119, end: 20220805
  8. ELOBIXIBAT [Suspect]
     Active Substance: ELOBIXIBAT
     Dosage: 2 DF, 1X/DAY (EVERYDA)
     Route: 048
     Dates: start: 20211119, end: 20220805
  9. MOVICOL [Suspect]
     Active Substance: POLYETHYLENE GLYCOL 3350\POTASSIUM CHLORIDE\SODIUM BICARBONATE\SODIUM CHLORIDE
     Dosage: 1 DF, PRN (ORAL DRUG UNSPECIFIED FORM)
     Route: 048
     Dates: start: 20211202, end: 20220805
  10. VONOPRAZAN FUMARATE [Concomitant]
     Active Substance: VONOPRAZAN FUMARATE
     Dosage: 20 MG
     Route: 065
  11. GASCON [DIMETICONE] [Concomitant]
     Dosage: 80 MG
     Route: 065
  12. BROTIZOLAM [Concomitant]
     Active Substance: BROTIZOLAM
     Dosage: 0.25 MG
     Route: 065
  13. RUPAFIN [Concomitant]
     Active Substance: RUPATADINE FUMARATE
     Dosage: 10 MG
     Route: 065
  14. MINOCYCLINE HYDROCHLORIDE [Concomitant]
     Active Substance: MINOCYCLINE HYDROCHLORIDE
     Dosage: 100 MG
     Route: 065
  15. DEXTROMETHORPHAN HYDROBROMIDE [Concomitant]
     Active Substance: DEXTROMETHORPHAN HYDROBROMIDE
     Dosage: 30 MG
     Route: 065
  16. CARBOCYSTEINE [Concomitant]
     Active Substance: CARBOCYSTEINE
     Dosage: 500 MG
     Route: 065

REACTIONS (4)
  - Renal impairment [Recovering/Resolving]
  - Diarrhoea [Recovered/Resolved]
  - Hypomagnesaemia [Not Recovered/Not Resolved]
  - Hypertension [Recovered/Resolved]

NARRATIVE: CASE EVENT DATE: 20220730
